FAERS Safety Report 8167446-X (Version None)
Quarter: 2012Q1

REPORT INFORMATION
  Report Type: 
  Country: None (occurrence: None)
  Receive Date: 20120103
  Receipt Date: 20111010
  Transmission Date: 20120608
  Serious: No
  Sender: FDA-Public Use
  Company Number: AE-2011-002193

PATIENT
  Age: 59 Year
  Sex: Female
  Weight: 63.9572 kg

DRUGS (6)
  1. INCIVEK [Suspect]
     Dosage: 2250 MG (750 MG, 3 IN 1 D),ORAL
     Route: 048
     Dates: start: 20110920
  2. RIBAVIRIN [Concomitant]
  3. HORMONE REPLACEMENT (HORMONES AND RELATED AGENTS) [Concomitant]
  4. RELAFEN (NABUMATONE) [Concomitant]
  5. PEGASYS [Concomitant]
  6. MULTI-VITAMINS [Concomitant]

REACTIONS (4)
  - CHILLS [None]
  - HAEMORRHOIDS [None]
  - ANORECTAL DISCOMFORT [None]
  - ANAL PRURITUS [None]
